FAERS Safety Report 4844789-6 (Version None)
Quarter: 2005Q4

REPORT INFORMATION
  Report Type: 
  Country: None (occurrence: None)
  Receive Date: 20051205
  Receipt Date: 20051124
  Transmission Date: 20060501
  Serious: Yes (Hospitalization)
  Sender: FDA-Public Use
  Company Number: DE-BRISTOL-MYERS SQUIBB COMPANY-13196589

PATIENT
  Age: 24 Year
  Sex: Female

DRUGS (4)
  1. ABILIFY [Suspect]
     Indication: SCHIZOPHRENIA, DISORGANISED TYPE
     Dosage: INTERRUPTED 05-MAY TO 09-MAY-2004
     Route: 048
     Dates: start: 20040428, end: 20040521
  2. TAVOR [Interacting]
     Dosage: 1.5 MG/D 20-APR 10 10-MAY-2004; 1 MG 11-MAY TO 14-MAY-2004; 0.5 MG SINCE 15-MAY-2004
     Route: 048
     Dates: start: 20040420
  3. ZELDOX [Concomitant]
     Route: 048
     Dates: end: 20040426
  4. SOLIAN [Concomitant]
     Route: 048
     Dates: end: 20040505

REACTIONS (2)
  - DRUG INTERACTION [None]
  - SYNCOPE [None]
